FAERS Safety Report 5593176-4 (Version None)
Quarter: 2008Q1

REPORT INFORMATION
  Report Type: 
  Country: None (occurrence: None)
  Receive Date: 20080115
  Receipt Date: 20080115
  Transmission Date: 20080703
  Serious: Yes (Hospitalization)
  Sender: FDA-Public Use
  Company Number: None

PATIENT
  Sex: Male
  Weight: 89.2 kg

DRUGS (8)
  1. MYLOTARG [Suspect]
     Dosage: 12 MG
  2. CYTARABINE [Suspect]
     Dosage: 1400 MG
  3. DAUNORUBICIN HCL [Suspect]
     Dosage: 270 MG
  4. ALLOPURINOL [Concomitant]
  5. CEFTAZIDIME [Concomitant]
  6. FLUCONAZOLE [Concomitant]
  7. TAZOCIN [Concomitant]
  8. VANCOMYCIN [Concomitant]

REACTIONS (13)
  - ADVERSE DRUG REACTION [None]
  - CSF PROTEIN INCREASED [None]
  - DIARRHOEA [None]
  - GUILLAIN-BARRE SYNDROME [None]
  - INFECTION [None]
  - MUSCLE TWITCHING [None]
  - PYREXIA [None]
  - RASH GENERALISED [None]
  - RASH MACULO-PAPULAR [None]
  - RASH PRURITIC [None]
  - SKIN HAEMORRHAGE [None]
  - SKIN INFLAMMATION [None]
  - SWELLING [None]
